FAERS Safety Report 12281507 (Version 2)
Quarter: 2016Q2

REPORT INFORMATION
  Report Type: Spontaneous
  Country: GB (occurrence: GB)
  Receive Date: 20160419
  Receipt Date: 20160610
  Transmission Date: 20160815
  Serious: Yes (Other)
  Sender: FDA-Public Use
  Company Number: GB-THE MEDICINES COMPANY-GB-MDCO-16-00101

PATIENT
  Sex: Male

DRUGS (1)
  1. KENGREXAL [Suspect]
     Active Substance: CANGRELOR
     Indication: PERCUTANEOUS CORONARY INTERVENTION
     Dosage: NOT REPORTED
     Dates: start: 20160410

REACTIONS (2)
  - Thrombocytopenia [Unknown]
  - Sepsis [Unknown]
